FAERS Safety Report 4524041-9 (Version None)
Quarter: 2004Q4

REPORT INFORMATION
  Report Type: 
  Country: None (occurrence: None)
  Receive Date: 20041209
  Receipt Date: 20041123
  Transmission Date: 20050328
  Serious: Yes (Hospitalization)
  Sender: FDA-Public Use
  Company Number: S04-CAN-08023-01

PATIENT
  Age: 83 Year
  Sex: Male

DRUGS (3)
  1. TIAZAC [Suspect]
     Indication: HYPERTENSION
     Dosage: 180 MG QD PO
     Route: 048
     Dates: end: 20041114
  2. ASPIRIN [Concomitant]
  3. PINDOLOL [Concomitant]

REACTIONS (3)
  - ATRIOVENTRICULAR BLOCK FIRST DEGREE [None]
  - ATRIOVENTRICULAR BLOCK SECOND DEGREE [None]
  - BRADYCARDIA [None]
